FAERS Safety Report 12550994 (Version 1)
Quarter: 2016Q3

REPORT INFORMATION
  Report Type: Report from Study
  Country: CA (occurrence: CA)
  Receive Date: 20160713
  Receipt Date: 20160713
  Transmission Date: 20161109
  Serious: Yes (Other)
  Sender: FDA-Public Use
  Company Number: CA-AMGEN-CANSL2016087642

PATIENT
  Age: 63 Year
  Sex: Female

DRUGS (1)
  1. REPATHA [Suspect]
     Active Substance: EVOLOCUMAB
     Indication: PRODUCT USED FOR UNKNOWN INDICATION
     Dosage: 140 MG (1.0 ML), UNK
     Route: 065
     Dates: start: 20151229

REACTIONS (4)
  - Productive cough [Unknown]
  - Increased bronchial secretion [Unknown]
  - Reversible airways obstruction [Unknown]
  - Respiratory arrest [Unknown]

NARRATIVE: CASE EVENT DATE: 201606
